FAERS Safety Report 16972063 (Version 1)
Quarter: 2019Q4

REPORT INFORMATION
  Report Type: Report from Study
  Country: US (occurrence: US)
  Receive Date: 20191029
  Receipt Date: 20191029
  Transmission Date: 20200122
  Serious: Yes (Other)
  Sender: FDA-Public Use
  Company Number: US-BAUSCH-BL-2019-055765

PATIENT
  Sex: Male
  Weight: 95.34 kg

DRUGS (1)
  1. SILIQ [Suspect]
     Active Substance: BRODALUMAB
     Indication: PSORIASIS
     Dosage: 8 TO 9 MONTHS AGO/ AT WEEKS 0, 1, AND 2, FOLLOWED BY 210 MG EVERY 2 WEEKS
     Route: 058
     Dates: start: 2019, end: 201909

REACTIONS (6)
  - Abdominal distension [Recovered/Resolved]
  - Suicidal ideation [Recovered/Resolved]
  - Depression [Recovering/Resolving]
  - Therapy cessation [Unknown]
  - Impaired healing [Not Recovered/Not Resolved]
  - Product storage error [Unknown]

NARRATIVE: CASE EVENT DATE: 2019
